FAERS Safety Report 7268878-4 (Version None)
Quarter: 2011Q1

REPORT INFORMATION
  Report Type: 
  Country: None (occurrence: None)
  Receive Date: 20110201
  Receipt Date: 20110125
  Transmission Date: 20110831
  Serious: Yes (Other)
  Sender: FDA-Public Use
  Company Number: IL-BAYER-2010-000094

PATIENT
  Sex: Female

DRUGS (2)
  1. MIRENA [Suspect]
     Indication: PRODUCT USED FOR UNKNOWN INDICATION
     Dosage: UNK
     Dates: start: 20100601, end: 20100601
  2. MIRENA [Suspect]
     Dosage: UNK
     Dates: start: 20100801

REACTIONS (1)
  - UTERINE PERFORATION [None]
